FAERS Safety Report 7821619-1 (Version None)
Quarter: 2011Q4

REPORT INFORMATION
  Report Type: 
  Country: None (occurrence: None)
  Receive Date: 20111018
  Receipt Date: 20110803
  Transmission Date: 20120403
  Serious: No
  Sender: FDA-Public Use
  Company Number: US-ASTRAZENECA-2011SE46399

PATIENT
  Age: 81 Year
  Sex: Male
  Weight: 122.5 kg

DRUGS (11)
  1. GABAPENTIN [Concomitant]
  2. IRON [Concomitant]
  3. COZAAR [Concomitant]
  4. OMEPRAZOLE [Concomitant]
  5. GLYBERIDE [Concomitant]
  6. ALBUTEROL [Concomitant]
  7. ACTOS [Concomitant]
  8. METFORMIN HCL [Concomitant]
  9. SYMBICORT [Suspect]
     Indication: DYSPNOEA
     Dosage: 160 MCG, TWO TIMES A DAY
     Route: 055
     Dates: start: 20100401, end: 20110701
  10. LOVASTATIN [Concomitant]
     Indication: BLOOD CHOLESTEROL ABNORMAL
  11. CENTRUM SILVER [Concomitant]

REACTIONS (4)
  - TONGUE DISORDER [None]
  - OFF LABEL USE [None]
  - ORAL CANDIDIASIS [None]
  - PRODUCTIVE COUGH [None]
